FAERS Safety Report 6103134-9 (Version None)
Quarter: 2009Q1

REPORT INFORMATION
  Report Type: 
  Country: None (occurrence: None)
  Receive Date: 20090305
  Receipt Date: 20090220
  Transmission Date: 20090719
  Serious: Yes (Hospitalization)
  Sender: FDA-Public Use
  Company Number: JP-PFIZER INC-2009154911

PATIENT

DRUGS (3)
  1. SOLANAX [Suspect]
     Indication: PANIC DISORDER
     Dosage: 0.4 MG, 2X/DAY
     Route: 048
     Dates: start: 20081001, end: 20090106
  2. DOGMATYL [Suspect]
     Indication: PANIC DISORDER
     Dosage: 50 MG, 2X/DAY
     Route: 048
     Dates: start: 20081001, end: 20090106
  3. ALL OTHER THERAPEUTIC PRODUCTS [Suspect]
     Indication: PANIC DISORDER
     Dosage: UNK
     Route: 048
     Dates: start: 20081001, end: 20090106

REACTIONS (1)
  - HEPATITIS ACUTE [None]
